FAERS Safety Report 11361299 (Version 1)
Quarter: 2015Q3

REPORT INFORMATION
  Report Type: Spontaneous
  Country: CH (occurrence: CH)
  Receive Date: 20150810
  Receipt Date: 20150810
  Transmission Date: 20151125
  Serious: Yes (Life-Threatening, Hospitalization)
  Sender: FDA-Public Use
  Company Number: PHHY2015CH094682

PATIENT
  Age: 28 Year
  Sex: Female

DRUGS (1)
  1. PARACETAMOL [Suspect]
     Active Substance: ACETAMINOPHEN
     Indication: PRODUCT USED FOR UNKNOWN INDICATION
     Route: 065

REACTIONS (5)
  - Choking [Recovered/Resolved]
  - Pneumonia [Unknown]
  - Rhabdomyolysis [Unknown]
  - Dysphagia [Recovered/Resolved]
  - Toxic epidermal necrolysis [Recovering/Resolving]
